FAERS Safety Report 7725484-2 (Version None)
Quarter: 2011Q3

REPORT INFORMATION
  Report Type: 
  Country: None (occurrence: None)
  Receive Date: 20110902
  Receipt Date: 20110713
  Transmission Date: 20111222
  Serious: No
  Sender: FDA-Public Use
  Company Number: US-BRISTOL-MYERS SQUIBB COMPANY-15902596

PATIENT
  Age: 40 Year
  Sex: Female
  Weight: 113 kg

DRUGS (3)
  1. AMARYL [Concomitant]
  2. METFORMIN [Concomitant]
     Dosage: 1 DF = 1000 UNIT NOT MENTIONED
  3. KOMBIGLYZE XR [Suspect]
     Dosage: ALSO TAKEN 2.5 MG,EVERY DAY

REACTIONS (7)
  - HYPERHIDROSIS [None]
  - NAUSEA [None]
  - OEDEMA PERIPHERAL [None]
  - LIP SWELLING [None]
  - TREMOR [None]
  - DYSGEUSIA [None]
  - BLOOD GLUCOSE DECREASED [None]
